FAERS Safety Report 9155115 (Version 1)
Quarter: 2013Q1

REPORT INFORMATION
  Report Type: Report from Study
  Country: US (occurrence: US)
  Receive Date: 20130311
  Receipt Date: 20130311
  Transmission Date: 20140127
  Serious: No
  Sender: FDA-Public Use
  Company Number: US-ABBOTT-12P-163-0968260-00

PATIENT
  Sex: Female
  Weight: 60.84 kg

DRUGS (9)
  1. LUPRON DEPOT 11.25 MG [Suspect]
     Indication: ENDOMETRIOSIS
     Route: 030
     Dates: start: 20120722
  2. NORETHINDRONE ACETATE [Concomitant]
     Indication: HOT FLUSH
     Route: 048
     Dates: start: 20120722
  3. NORETHINDRONE ACETATE [Concomitant]
     Indication: NIGHT SWEATS
  4. IBUPROFEN [Concomitant]
     Indication: PAIN
     Route: 048
  5. IBUPROFEN [Concomitant]
     Indication: PAIN MANAGEMENT
  6. CLARITIN [Concomitant]
     Indication: SEASONAL ALLERGY
     Dosage: TAKES IN THE SPRING
  7. RANITIDINE [Concomitant]
     Indication: RASH
     Route: 048
  8. TRAMADOL [Concomitant]
     Indication: PRODUCT USED FOR UNKNOWN INDICATION
     Route: 048
  9. ZOFRAN [Concomitant]
     Indication: PRODUCT USED FOR UNKNOWN INDICATION
     Route: 048

REACTIONS (11)
  - Back pain [Not Recovered/Not Resolved]
  - Rash [Not Recovered/Not Resolved]
  - Abdominal pain [Not Recovered/Not Resolved]
  - Ovarian disorder [Not Recovered/Not Resolved]
  - Hot flush [Not Recovered/Not Resolved]
  - Hyperhidrosis [Not Recovered/Not Resolved]
  - Nausea [Not Recovered/Not Resolved]
  - Menorrhagia [Not Recovered/Not Resolved]
  - Impaired work ability [Unknown]
  - Vomiting [Unknown]
  - Dysstasia [Unknown]
